FAERS Safety Report 13700541 (Version 1)
Quarter: 2017Q2

REPORT INFORMATION
  Report Type: Spontaneous
  Country: US (occurrence: US)
  Receive Date: 20170628
  Receipt Date: 20170628
  Transmission Date: 20170830
  Serious: Yes (Hospitalization, Disabling, Other)
  Sender: FDA-Public Use
  Company Number: None

PATIENT

DRUGS (2)
  1. NITROFURANTOIN MONO-MCR 100 MG ALVOGEN [Suspect]
     Active Substance: NITROFURANTOIN\NITROFURANTOIN MONOHYDRATE
     Indication: URINARY TRACT INFECTION
     Route: 048
     Dates: start: 20170603, end: 20170610
  2. NITROFURANTOIN MONO-MCR 100 MG ALVOGEN [Suspect]
     Active Substance: NITROFURANTOIN\NITROFURANTOIN MONOHYDRATE
     Indication: NEPHROLITHIASIS
     Route: 048
     Dates: start: 20170603, end: 20170610

REACTIONS (3)
  - Myocardial infarction [None]
  - Cardiac failure [None]
  - Respiratory failure [None]

NARRATIVE: CASE EVENT DATE: 20170611
